FAERS Safety Report 7532923-9 (Version None)
Quarter: 2011Q2

REPORT INFORMATION
  Report Type: 
  Country: None (occurrence: None)
  Receive Date: 20110607
  Receipt Date: 20110607
  Transmission Date: 20111010
  Serious: Yes (Other)
  Sender: FDA-Public Use
  Company Number: None

PATIENT
  Age: 46 Year
  Sex: Female
  Weight: 77.1115 kg

DRUGS (3)
  1. PREDNISONE TAB [Suspect]
     Indication: PAIN
     Dosage: 3 TABLETS/2 TABLETS/ 1 TABLET 3DAYS/3DAYS/4 DAYS PO
     Route: 048
     Dates: start: 20110605, end: 20110615
  2. PREDNISONE TAB [Suspect]
     Indication: BURNING SENSATION
     Dosage: 3 TABLETS/2 TABLETS/ 1 TABLET 3DAYS/3DAYS/4 DAYS PO
     Route: 048
     Dates: start: 20110605, end: 20110615
  3. PREDNISONE TAB [Suspect]
     Indication: ASTHENIA
     Dosage: 3 TABLETS/2 TABLETS/ 1 TABLET 3DAYS/3DAYS/4 DAYS PO
     Route: 048
     Dates: start: 20110605, end: 20110615

REACTIONS (8)
  - OEDEMA PERIPHERAL [None]
  - PRODUCT QUALITY ISSUE [None]
  - FEELING ABNORMAL [None]
  - INSOMNIA [None]
  - AMENORRHOEA [None]
  - NERVOUSNESS [None]
  - WEIGHT INCREASED [None]
  - MOVEMENT DISORDER [None]
